FAERS Safety Report 7598435-1 (Version None)
Quarter: 2011Q3

REPORT INFORMATION
  Report Type: 
  Country: None (occurrence: None)
  Receive Date: 20110708
  Receipt Date: 20110628
  Transmission Date: 20111222
  Serious: Yes (Hospitalization, Other)
  Sender: FDA-Public Use
  Company Number: US-MERCK-1105USA01177

PATIENT
  Age: 56 Year
  Sex: Female

DRUGS (3)
  1. FOSAMAX [Suspect]
     Indication: OSTEOPOROSIS
     Route: 048
     Dates: start: 20000101, end: 20080701
  2. HYDROCHLOROTHIAZIDE [Concomitant]
     Indication: URINE CALCIUM
     Route: 065
     Dates: start: 19620101
  3. POTASSIUM CHLORIDE [Concomitant]
     Route: 065
     Dates: start: 19620101

REACTIONS (4)
  - FEMUR FRACTURE [None]
  - BREAST CANCER [None]
  - ARTHROSCOPY [None]
  - OSTEOPOROSIS [None]
